FAERS Safety Report 6004651-2 (Version None)
Quarter: 2008Q4

REPORT INFORMATION
  Report Type: 
  Country: None (occurrence: None)
  Receive Date: 20081216
  Receipt Date: 20081108
  Transmission Date: 20090506
  Serious: Yes (Other)
  Sender: FDA-Public Use
  Company Number: DK-PFIZER INC-2008152986

PATIENT

DRUGS (6)
  1. LYRICA [Suspect]
     Indication: ANXIETY
     Dosage: 75 MG, 2X/DAY
     Dates: start: 20081117
  2. EFFEXOR [Concomitant]
     Dosage: UNK
     Dates: start: 20060101
  3. PAROXETINE HCL [Concomitant]
     Indication: ANXIETY
     Dosage: UNK
     Dates: start: 20020101
  4. PAROXETINE HCL [Concomitant]
     Indication: DEPRESSION
  5. ZYPREXA [Concomitant]
     Indication: DEPRESSION
     Dosage: UNK
     Dates: start: 20060101
  6. OXAZEPAM ^BOTA^ [Concomitant]
     Indication: ANXIETY
     Dosage: UNK

REACTIONS (1)
  - EYE OEDEMA [None]
